FAERS Safety Report 5759404-7 (Version None)
Quarter: 2008Q2

REPORT INFORMATION
  Report Type: 
  Country: None (occurrence: None)
  Receive Date: 20080604
  Receipt Date: 20080604
  Transmission Date: 20081010
  Serious: Yes (Other)
  Sender: FDA-Public Use
  Company Number: None

PATIENT
  Sex: Male
  Weight: 70.3075 kg

DRUGS (1)
  1. DIGOXIN [Suspect]
     Indication: CARDIAC DISORDER
     Dosage: 1 TABLET DAILY 1 DAILY GENERIC 6 REFILLS
     Dates: start: 20060101, end: 20080101

REACTIONS (10)
  - ANXIETY [None]
  - ARTHRALGIA [None]
  - DYSPEPSIA [None]
  - GASTROINTESTINAL DISORDER [None]
  - HEADACHE [None]
  - HYPERSENSITIVITY [None]
  - IRRITABILITY [None]
  - MYALGIA [None]
  - RASH [None]
  - VISUAL DISTURBANCE [None]
